FAERS Safety Report 9478255 (Version 2)
Quarter: 2013Q4

REPORT INFORMATION
  Report Type: Spontaneous
  Country: US (occurrence: US)
  Receive Date: 20130827
  Receipt Date: 20131011
  Transmission Date: 20140711
  Serious: No
  Sender: FDA-Public Use
  Company Number: US-JNJFOC-20130808781

PATIENT
  Sex: Male
  Weight: 75.3 kg

DRUGS (4)
  1. DURAGESIC [Suspect]
     Indication: ABDOMINAL PAIN
     Route: 062
     Dates: start: 201305
  2. DURAGESIC [Suspect]
     Indication: ABDOMINAL PAIN
     Route: 062
     Dates: start: 201305, end: 2013
  3. FENTANYL [Suspect]
     Indication: ABDOMINAL PAIN
     Route: 062
  4. HUMIRA [Concomitant]
     Indication: COLITIS ULCERATIVE
     Route: 058

REACTIONS (4)
  - Wrong technique in drug usage process [Not Recovered/Not Resolved]
  - Withdrawal syndrome [Unknown]
  - Product quality issue [Unknown]
  - Wrong technique in drug usage process [Unknown]
